FAERS Safety Report 13024907 (Version 2)
Quarter: 2017Q1

REPORT INFORMATION
  Report Type: Spontaneous
  Country: JP (occurrence: JP)
  Receive Date: 20161213
  Receipt Date: 20170104
  Transmission Date: 20170428
  Serious: Yes (Other)
  Sender: FDA-Public Use
  Company Number: JP-AMGEN-JPNSP2016175850

PATIENT
  Age: 91 Year
  Sex: Male
  Weight: 58 kg

DRUGS (8)
  1. RANMARK [Suspect]
     Active Substance: DENOSUMAB
     Indication: METASTASES TO BONE
  2. UBRETID [Concomitant]
     Active Substance: DISTIGMINE BROMIDE
     Dosage: 5 MG, QD, AFTER BREAKFAST
     Route: 065
     Dates: start: 20161004
  3. BICALUTAMIDE. [Concomitant]
     Active Substance: BICALUTAMIDE
     Dosage: 80 MG, QD, AFTER BREAKFAST
     Route: 065
     Dates: start: 20161004
  4. FLIVAS [Concomitant]
     Active Substance: NAFTOPIDIL
     Dosage: UNK
     Route: 065
     Dates: start: 20161004
  5. RANMARK [Suspect]
     Active Substance: DENOSUMAB
     Indication: PROSTATE CANCER
     Dosage: 120 MG, AS NECESSARY
     Route: 058
     Dates: start: 20161004, end: 20161004
  6. DENOTAS [Concomitant]
     Active Substance: CALCIUM CARBONATE\CHOLECALCIFEROL\MAGNESIUM CARBONATE
     Dosage: 2 DF, QD, AFTER BREAKFAST
     Route: 048
     Dates: start: 20161004, end: 20161108
  7. NAFTOPIDIL [Concomitant]
     Active Substance: NAFTOPIDIL
     Dosage: 50 MG, QD, AFTER BREAKFAST
     Route: 065
     Dates: start: 20161004
  8. CASODEX [Concomitant]
     Active Substance: BICALUTAMIDE
     Dosage: UNK
     Route: 065
     Dates: start: 20161004

REACTIONS (2)
  - Osteomyelitis [Not Recovered/Not Resolved]
  - Osteonecrosis of jaw [Not Recovered/Not Resolved]

NARRATIVE: CASE EVENT DATE: 20161024
